FAERS Safety Report 23855619 (Version 4)
Quarter: 2024Q3

REPORT INFORMATION
  Report Type: Spontaneous
  Country: US (occurrence: US)
  Receive Date: 20240514
  Receipt Date: 20240902
  Transmission Date: 20241016
  Serious: No
  Sender: JOHNSON AND JOHNSON
  Company Number: US-JNJFOC-20240504554

PATIENT
  Age: 39 Year
  Sex: Male

DRUGS (1)
  1. ZYRTEC [Suspect]
     Active Substance: CETIRIZINE HYDROCHLORIDE
     Indication: Multiple allergies
     Dosage: ONCE
     Route: 065
     Dates: start: 20240428

REACTIONS (6)
  - Feeling abnormal [Unknown]
  - Dry mouth [Unknown]
  - Therapeutic product effect incomplete [Unknown]
  - Product taste abnormal [Unknown]
  - Suspected counterfeit product [Unknown]
  - Product label issue [Unknown]

NARRATIVE: CASE EVENT DATE: 20240428
